FAERS Safety Report 18227409 (Version 1)
Quarter: 2020Q3

REPORT INFORMATION
  Report Type: Spontaneous
  Country: US (occurrence: US)
  Receive Date: 20200903
  Receipt Date: 20200903
  Transmission Date: 20201103
  Serious: No
  Sender: FDA-Public Use
  Company Number: US-HERON THERAPEUTICS, INC-HRTX-2020-000610

PATIENT
  Sex: Female

DRUGS (1)
  1. SUSTOL [Suspect]
     Active Substance: GRANISETRON
     Indication: PRODUCT USED FOR UNKNOWN INDICATION
     Dosage: 10 MG, SINGLE

REACTIONS (5)
  - Occupational exposure to product [Unknown]
  - Skin laceration [Unknown]
  - Product quality issue [Unknown]
  - Syringe issue [Unknown]
  - Product preparation error [Unknown]

NARRATIVE: CASE EVENT DATE: 20191223
